FAERS Safety Report 8761148 (Version 1)
Quarter: 2012Q4

REPORT INFORMATION
  Report Type: 
  Country: DE (occurrence: DE)
  Receive Date: 20120830
  Receipt Date: 20120830
  Transmission Date: 20130627
  Serious: Yes (Other)
  Sender: FDA-Public Use
  Company Number: DE-JNJFOC-20120814171

PATIENT
  Age: 71 Year
  Sex: Female
  Weight: 78 kg

DRUGS (8)
  1. XARELTO [Suspect]
     Indication: CEREBROVASCULAR ACCIDENT PROPHYLAXIS
     Route: 048
     Dates: start: 20120527, end: 20120625
  2. XARELTO [Suspect]
     Indication: ATRIAL FIBRILLATION
     Route: 048
     Dates: start: 20120527, end: 20120625
  3. DIGITOXIN [Suspect]
     Indication: PRODUCT USED FOR UNKNOWN INDICATION
     Dates: start: 20120527, end: 20120625
  4. SIMVASTATIN [Concomitant]
     Indication: CORONARY ARTERY DISEASE
  5. ACETYLSALICYLIC ACID [Concomitant]
     Route: 048
  6. CORIFEO [Concomitant]
     Indication: CORONARY ARTERY DISEASE
     Route: 048
  7. BISOPROLOL [Concomitant]
     Indication: CORONARY ARTERY DISEASE
  8. ENALAPRIL [Concomitant]
     Indication: CORONARY ARTERY DISEASE
     Route: 048

REACTIONS (3)
  - Dyspnoea [Not Recovered/Not Resolved]
  - Nausea [Recovered/Resolved]
  - Asthenia [Recovered/Resolved]
